FAERS Safety Report 10375176 (Version 2)
Quarter: 2014Q4

REPORT INFORMATION
  Report Type: Other
  Country: US (occurrence: US)
  Receive Date: 20140811
  Receipt Date: 20141001
  Transmission Date: 20150528
  Serious: Yes (Other)
  Sender: FDA-Public Use
  Company Number: US-SHIRE-US201404518

PATIENT
  Age: 55 Year
  Sex: Female
  Weight: 44.44 kg

DRUGS (3)
  1. CINRYZE [Suspect]
     Active Substance: HUMAN C1-ESTERASE INHIBITOR
     Indication: PROPHYLAXIS
     Dosage: UNK, OTHER (THREE TIMES PER WEEK)
     Route: 042
     Dates: start: 2014
  2. SYNTHROID [Concomitant]
     Active Substance: LEVOTHYROXINE SODIUM
     Indication: HYPOTHYROIDISM
     Dosage: UNK, UNKNOWN
     Route: 065
  3. CINRYZE [Suspect]
     Active Substance: HUMAN C1-ESTERASE INHIBITOR
     Indication: HEREDITARY ANGIOEDEMA
     Dosage: 1000 UNITS, EVERY 3 DAYS
     Route: 042
     Dates: start: 201405

REACTIONS (15)
  - Abdominal pain [Recovered/Resolved]
  - Skin oedema [Not Recovered/Not Resolved]
  - Oesophageal oedema [Recovered/Resolved]
  - Poor venous access [Unknown]
  - Diarrhoea [Recovered/Resolved]
  - Palpitations [Unknown]
  - Inappropriate schedule of drug administration [Recovered/Resolved]
  - Discomfort [Recovered/Resolved]
  - Pruritus [Unknown]
  - Vascular injury [Recovered/Resolved]
  - Abdominal distension [Recovered/Resolved]
  - Dyspnoea [Recovered/Resolved]
  - Gait disturbance [Recovered/Resolved]
  - Anxiety [Unknown]
  - Hereditary angioedema [Not Recovered/Not Resolved]

NARRATIVE: CASE EVENT DATE: 201407
